FAERS Safety Report 8602785-7 (Version None)
Quarter: 2012Q3

REPORT INFORMATION
  Report Type: 
  Country: None (occurrence: None)
  Receive Date: 20120817
  Receipt Date: 20120809
  Transmission Date: 20120928
  Serious: Yes (Other)
  Sender: FDA-Public Use
  Company Number: GB-JNJFOC-20120806715

PATIENT
  Age: 75 Year
  Sex: Male

DRUGS (3)
  1. REMICADE [Suspect]
     Indication: RHEUMATOID ARTHRITIS
     Route: 042
     Dates: start: 20020808
  2. METHOTREXATE [Concomitant]
  3. REMICADE [Suspect]
     Route: 042
     Dates: start: 20111215

REACTIONS (1)
  - LENTIGO MALIGNA STAGE UNSPECIFIED [None]
